FAERS Safety Report 8571137-0 (Version None)
Quarter: 2012Q3

REPORT INFORMATION
  Report Type: 
  Country: None (occurrence: None)
  Receive Date: 20120806
  Receipt Date: 20120731
  Transmission Date: 20120928
  Serious: No
  Sender: FDA-Public Use
  Company Number: US-PFIZER INC-2012186603

PATIENT
  Sex: Male

DRUGS (1)
  1. LIPITOR [Suspect]
     Dosage: UNK
     Dates: end: 20120601

REACTIONS (4)
  - HYPERSOMNIA [None]
  - FEELING ABNORMAL [None]
  - VOMITING [None]
  - MALAISE [None]
